FAERS Safety Report 4549410-2 (Version None)
Quarter: 2005Q1

REPORT INFORMATION
  Report Type: 
  Country: None (occurrence: None)
  Receive Date: 20050110
  Receipt Date: 20050110
  Transmission Date: 20050727
  Serious: Yes (Life-Threatening, Hospitalization, Disabling, Other)
  Sender: FDA-Public Use
  Company Number: None

PATIENT
  Age: 49 Year
  Sex: Female

DRUGS (2)
  1. CORICIDIN [Suspect]
     Dosage: ORAL
     Route: 048
  2. TAVIST-D [Suspect]
     Route: 065

REACTIONS (12)
  - AGGRESSION [None]
  - ANXIETY [None]
  - ATTENTION DEFICIT/HYPERACTIVITY DISORDER [None]
  - BALANCE DISORDER [None]
  - CONVULSION [None]
  - DEPRESSION [None]
  - HEMIPARESIS [None]
  - INTRACRANIAL ANEURYSM [None]
  - MEMORY IMPAIRMENT [None]
  - MIDDLE INSOMNIA [None]
  - SUBARACHNOID HAEMORRHAGE [None]
  - WEIGHT DECREASED [None]
